FAERS Safety Report 16199786 (Version 1)
Quarter: 2019Q2

REPORT INFORMATION
  Report Type: Other
  Country: US (occurrence: US)
  Receive Date: 20190415
  Receipt Date: 20190415
  Transmission Date: 20190711
  Serious: Yes (Life-Threatening, Hospitalization, Other)
  Sender: FDA-Public Use
  Company Number: US-C B FLEET CO INC-201904-US-000880

PATIENT
  Age: 32 Year
  Sex: Male

DRUGS (1)
  1. DEXTROMETHORPHAN HYDROBROMIDE. [Suspect]
     Active Substance: DEXTROMETHORPHAN HYDROBROMIDE
     Indication: POISONING
     Dosage: INCREASED DOSE WITH EACH USE TO OBTAIN SAME LEVEL OF INTOXICATION
     Route: 065

REACTIONS (4)
  - Intentional overdose [None]
  - Drug abuse [None]
  - Poisoning [Unknown]
  - Hyperchloraemia [Unknown]
